FAERS Safety Report 11112557 (Version 3)
Quarter: 2015Q3

REPORT INFORMATION
  Report Type: Spontaneous
  Country: US (occurrence: US)
  Receive Date: 20150514
  Receipt Date: 20150910
  Transmission Date: 20151125
  Serious: Yes (Other)
  Sender: FDA-Public Use
  Company Number: US-ASTRAZENECA-2015SE43494

PATIENT
  Age: 21677 Day
  Sex: Female
  Weight: 88 kg

DRUGS (50)
  1. BYETTA [Suspect]
     Active Substance: EXENATIDE
     Route: 065
     Dates: start: 20111104
  2. ACTOS [Concomitant]
     Active Substance: PIOGLITAZONE HYDROCHLORIDE
     Route: 048
     Dates: start: 20080209
  3. CENTRUM SILVER [Concomitant]
     Active Substance: VITAMINS
     Dosage: 0.4 MG-300 MCG-250 MCG
     Route: 048
     Dates: start: 20130412
  4. MUCINEX [Concomitant]
     Active Substance: GUAIFENESIN
     Dates: start: 20140815
  5. PRILOSEC [Concomitant]
     Active Substance: OMEPRAZOLE MAGNESIUM
     Route: 048
     Dates: start: 20060530
  6. LYRICA [Concomitant]
     Active Substance: PREGABALIN
     Dates: start: 20080917
  7. BENZONATATE. [Concomitant]
     Active Substance: BENZONATATE
     Dates: start: 20090611
  8. TIZANIDINE HCL [Concomitant]
     Active Substance: TIZANIDINE HYDROCHLORIDE
     Dates: start: 20061031
  9. BYETTA [Suspect]
     Active Substance: EXENATIDE
     Dosage: 10 MCG/0.04 ML, DAILY
     Route: 065
     Dates: start: 20130412
  10. SYNTHROID [Concomitant]
     Active Substance: LEVOTHYROXINE SODIUM
     Route: 048
     Dates: start: 20131122
  11. HYOSCYAMINE. [Concomitant]
     Active Substance: HYOSCYAMINE
     Dates: start: 20131112
  12. IBUPROFEN. [Concomitant]
     Active Substance: IBUPROFEN
     Dates: start: 20140423
  13. FAMOTIDINE. [Concomitant]
     Active Substance: FAMOTIDINE
     Dates: start: 20140814
  14. PREMPRO [Concomitant]
     Active Substance: ESTROGENS, CONJUGATED\MEDROXYPROGESTERONE ACETATE
     Dosage: 0.3-1.5 MG
     Dates: start: 20070630
  15. ELIQUIS [Concomitant]
     Active Substance: APIXABAN
     Dates: start: 20150505
  16. JANUVIA [Suspect]
     Active Substance: SITAGLIPTIN PHOSPHATE
     Route: 065
     Dates: start: 20090523
  17. XYZAL [Concomitant]
     Active Substance: LEVOCETIRIZINE DIHYDROCHLORIDE
     Route: 048
     Dates: start: 20130412
  18. MOBIC [Concomitant]
     Active Substance: MELOXICAM
     Route: 048
     Dates: start: 20130412
  19. TRAMADOL. [Concomitant]
     Active Substance: TRAMADOL
     Route: 048
     Dates: start: 20130412
  20. ZOFRAN [Concomitant]
     Active Substance: ONDANSETRON HYDROCHLORIDE
     Route: 048
     Dates: start: 20090215
  21. ALPRAZOLAM. [Concomitant]
     Active Substance: ALPRAZOLAM
     Dates: start: 20131019
  22. CREON [Concomitant]
     Active Substance: PANCRELIPASE AMYLASE\PANCRELIPASE LIPASE\PANCRELIPASE PROTEASE
     Dosage: 24000-76000-120000 UNITS, THREE TIMES A DAY
     Route: 048
     Dates: start: 20130412
  23. METFORMIN HCL [Concomitant]
     Active Substance: METFORMIN HYDROCHLORIDE
     Route: 048
     Dates: start: 20130412
  24. MARINOL [Concomitant]
     Active Substance: DRONABINOL
     Route: 048
     Dates: start: 20140115
  25. SUTENT [Concomitant]
     Active Substance: SUNITINIB MALATE
     Route: 048
     Dates: start: 20141120
  26. ECOTRIN [Concomitant]
     Active Substance: ASPIRIN
     Route: 048
     Dates: start: 20141120
  27. BACLOFEN. [Concomitant]
     Active Substance: BACLOFEN
     Dates: start: 20130730
  28. JANUVIA [Suspect]
     Active Substance: SITAGLIPTIN PHOSPHATE
     Route: 065
     Dates: start: 20080917, end: 20120203
  29. JANUVIA [Suspect]
     Active Substance: SITAGLIPTIN PHOSPHATE
     Route: 065
     Dates: start: 20080917
  30. GLUCOSAMINE [Concomitant]
     Active Substance: GLUCOSAMINE
     Route: 048
     Dates: start: 20141120
  31. MULTIVITAMINS [Concomitant]
     Active Substance: VITAMINS
     Route: 048
     Dates: start: 20130412
  32. OXYCODONE HCL [Concomitant]
     Active Substance: OXYCODONE HYDROCHLORIDE
     Route: 048
     Dates: start: 20140712
  33. FEMHRT [Concomitant]
     Active Substance: ETHINYL ESTRADIOL\NORETHINDRONE ACETATE
     Dosage: 0.5-2.5 MCG
     Dates: start: 20090702
  34. PREDNISONE. [Concomitant]
     Active Substance: PREDNISONE
     Dates: start: 20090811
  35. RANITIDINE [Concomitant]
     Active Substance: RANITIDINE\RANITIDINE HYDROCHLORIDE
     Dates: start: 20090811
  36. PROFEN FORTE [Concomitant]
     Dates: start: 20060406
  37. ZOLPIDEM TARTRATE. [Concomitant]
     Active Substance: ZOLPIDEM TARTRATE
     Dates: start: 20080829
  38. NABUMETONE. [Concomitant]
     Active Substance: NABUMETONE
     Dates: start: 20100914
  39. JANUVIA [Suspect]
     Active Substance: SITAGLIPTIN PHOSPHATE
     Route: 065
     Dates: start: 20100115
  40. CYMBALTA [Concomitant]
     Active Substance: DULOXETINE HYDROCHLORIDE
     Route: 048
     Dates: start: 20131129
  41. AMARYL [Concomitant]
     Active Substance: GLIMEPIRIDE
     Route: 048
     Dates: start: 20141120
  42. METRONIDAZOLE. [Concomitant]
     Active Substance: METRONIDAZOLE
     Dates: start: 20130214
  43. CYCLOBENZAPRINE [Concomitant]
     Active Substance: CYCLOBENZAPRINE
     Dates: start: 20140624
  44. ZYRTEC [Concomitant]
     Active Substance: CETIRIZINE HYDROCHLORIDE
     Dates: start: 20070811
  45. HYDROXYZINE HCL [Concomitant]
     Active Substance: HYDROXYZINE HYDROCHLORIDE
     Dates: start: 20070831
  46. BYETTA [Suspect]
     Active Substance: EXENATIDE
     Route: 065
     Dates: start: 2009, end: 20130502
  47. PERCOCET [Concomitant]
     Active Substance: ACETAMINOPHEN\OXYCODONE HYDROCHLORIDE
     Dosage: 5-325 MG, ONE TABLET EVERY FOUR HOURS
     Route: 048
     Dates: start: 20131122
  48. CALCIUM [Concomitant]
     Active Substance: CALCIUM
     Route: 048
     Dates: start: 20130412
  49. FLUOXETINE HCL [Concomitant]
     Active Substance: FLUOXETINE HYDROCHLORIDE
     Dates: start: 20060406
  50. LISINOPRIL. [Concomitant]
     Active Substance: LISINOPRIL
     Dates: start: 20140515

REACTIONS (3)
  - Pancreatic neuroendocrine tumour metastatic [Unknown]
  - Metastases to liver [Unknown]
  - Metastases to peritoneum [Unknown]

NARRATIVE: CASE EVENT DATE: 20130509
